FAERS Safety Report 4766486-8 (Version None)
Quarter: 2005Q3

REPORT INFORMATION
  Report Type: 
  Country: None (occurrence: None)
  Receive Date: 20050909
  Receipt Date: 20050831
  Transmission Date: 20060218
  Serious: Yes (Hospitalization)
  Sender: FDA-Public Use
  Company Number: 2005122490

PATIENT
  Age: 8 Year
  Sex: Male

DRUGS (1)
  1. GENOTROPIN [Suspect]
     Indication: ILL-DEFINED DISORDER
     Dosage: 0.6 MG,
     Dates: start: 20040531

REACTIONS (4)
  - FACE OEDEMA [None]
  - HAEMOLYSIS [None]
  - NEPHRITIS [None]
  - STREPTOCOCCAL INFECTION [None]
